FAERS Safety Report 17199640 (Version 1)
Quarter: 2019Q4

REPORT INFORMATION
  Report Type: Spontaneous
  Country: PH (occurrence: PH)
  Receive Date: 20191226
  Receipt Date: 20191226
  Transmission Date: 20200122
  Serious: Yes (Hospitalization, Other)
  Sender: FDA-Public Use
  Company Number: PH-MACLEODS PHARMACEUTICALS US LTD-MAC2019024242

PATIENT

DRUGS (2)
  1. METFORMIN [Suspect]
     Active Substance: METFORMIN HYDROCHLORIDE
     Indication: TYPE 2 DIABETES MELLITUS
     Dosage: 1 DOSAGE FORM, QD TABLET
     Route: 048
  2. METFORMIN [Suspect]
     Active Substance: METFORMIN HYDROCHLORIDE
     Dosage: UNK, CONTINUED WITH POOR COMPLIANCE DURING THE REMAINING MONTHS
     Route: 048

REACTIONS (3)
  - Staphylococcal infection [Recovering/Resolving]
  - Photosensitivity reaction [Recovering/Resolving]
  - Type IV hypersensitivity reaction [Recovering/Resolving]
